FAERS Safety Report 8900717 (Version 3)
Quarter: 2013Q2

REPORT INFORMATION
  Report Type: Report from Study
  Country: US (occurrence: US)
  Receive Date: 20121109
  Receipt Date: 20130501
  Transmission Date: 20140414
  Serious: Yes (Hospitalization)
  Sender: FDA-Public Use
  Company Number: US-NOVOPROD-361677

PATIENT
  Age: 54 Year
  Sex: Male
  Weight: 119.23 kg

DRUGS (3)
  1. LIRAGLUTIDE FLEXPEN [Suspect]
     Indication: TYPE 2 DIABETES MELLITUS
     Dosage: 1.8 MG, QD
     Route: 058
     Dates: start: 20120501
  2. COUMADIN                           /00014802/ [Concomitant]
  3. LASIX                              /00032601/ [Concomitant]

REACTIONS (1)
  - International normalised ratio decreased [Recovered/Resolved]
